FAERS Safety Report 7004560-6 (Version None)
Quarter: 2010Q3

REPORT INFORMATION
  Report Type: 
  Country: None (occurrence: None)
  Receive Date: 20100921
  Receipt Date: 20100914
  Transmission Date: 20110219
  Serious: Yes (Other)
  Sender: FDA-Public Use
  Company Number: US-ASTRAZENECA-2007UW18876

PATIENT
  Age: 54 Year
  Sex: Female
  Weight: 77.1 kg

DRUGS (19)
  1. SEROQUEL [Suspect]
     Indication: DEPRESSION
     Dosage: 25-100MG
     Route: 048
     Dates: start: 19990723, end: 20041022
  2. SEROQUEL [Suspect]
     Indication: ANXIETY
     Dosage: 25-100MG
     Route: 048
     Dates: start: 19990723, end: 20041022
  3. SEROQUEL [Suspect]
     Route: 048
     Dates: start: 20000331, end: 20041022
  4. SEROQUEL [Suspect]
     Route: 048
     Dates: start: 20000331, end: 20041022
  5. CLONAZEPAM [Concomitant]
     Dates: start: 19990723
  6. CLONAZEPAM [Concomitant]
     Route: 048
     Dates: start: 20090302
  7. TRAZODONE HCL [Concomitant]
     Dosage: 50 MG, 4 AT HS
     Dates: start: 19990723
  8. TRAZODONE HCL [Concomitant]
     Dosage: TAKE TWO TABLETS
     Route: 048
     Dates: start: 20090315
  9. CLOMIPRAMINE [Concomitant]
     Dosage: 15 MG, 4 AT HS
     Dates: start: 19990723
  10. IBUPROFEN [Concomitant]
     Dates: start: 20020815
  11. KETOROLAC TROMETHAMINE [Concomitant]
     Route: 048
     Dates: start: 20020815
  12. PRAVASTATIN SODIUM [Concomitant]
     Dosage: TAKE ONE AND HALF TABLET
     Route: 048
     Dates: start: 20090217
  13. DILTIAZEM [Concomitant]
     Dosage: TAKEONE CAPSULE
     Route: 048
     Dates: start: 20090217
  14. ZYPREXA [Concomitant]
     Indication: DEPRESSION
     Dosage: 2.5-10 MG
     Route: 048
     Dates: start: 20070101, end: 20081101
  15. MIRTAZAPINE [Concomitant]
     Route: 048
     Dates: start: 20090301
  16. GABAPENTIN [Concomitant]
     Dosage: TAKE ONE CAPSULE
     Route: 048
     Dates: start: 20090307
  17. RISPERDAL [Concomitant]
     Dates: start: 19940401, end: 19940901
  18. TARACTAN [Concomitant]
  19. MELLARIL [Concomitant]

REACTIONS (11)
  - BLOOD CHOLESTEROL INCREASED [None]
  - BREAST CANCER [None]
  - BREAST CANCER FEMALE [None]
  - BREAST OPERATION [None]
  - CHOLELITHIASIS [None]
  - DIABETES MELLITUS [None]
  - GALLBLADDER OPERATION [None]
  - HYPERGLYCAEMIA [None]
  - HYPERLIPIDAEMIA [None]
  - NEUROPATHY PERIPHERAL [None]
  - TYPE 2 DIABETES MELLITUS [None]
